FAERS Safety Report 13828741 (Version 1)
Quarter: 2017Q3

REPORT INFORMATION
  Report Type: Spontaneous
  Country: US (occurrence: US)
  Receive Date: 20170803
  Receipt Date: 20170803
  Transmission Date: 20171127
  Serious: No
  Sender: FDA-Public Use
  Company Number: US-B.I. PHARMACEUTICALS,INC./RIDGEFIELD-2017-BI-042112

PATIENT
  Age: 78 Year
  Sex: Male

DRUGS (1)
  1. CATAPRES-TTS [Suspect]
     Active Substance: CLONIDINE
     Indication: HYPERTENSION
     Dosage: WEEKLY;  FORM STRENGTH: 7.5 MG (0.3 MG / DAY); FORMULATION: PATCH? ADMINISTRATION CORRECT? YES ?ACTI
     Route: 061
     Dates: start: 20170718

REACTIONS (2)
  - Product adhesion issue [Recovered/Resolved]
  - Balance disorder [Not Recovered/Not Resolved]

NARRATIVE: CASE EVENT DATE: 20170718
